FAERS Safety Report 4341267-8 (Version None)
Quarter: 2004Q1

REPORT INFORMATION
  Report Type: 
  Country: None (occurrence: None)
  Receive Date: 20040329
  Receipt Date: 20031202
  Transmission Date: 20041129
  Serious: No
  Sender: FDA-Public Use
  Company Number: 03P-163-0243443-00

PATIENT
  Age: 61 Year
  Sex: Female
  Weight: 90.7194 kg

DRUGS (9)
  1. HUMIRA [Suspect]
     Indication: RHEUMATOID ARTHRITIS
     Dosage: 40 MG, 1 IN 2 WK, SUBCUTANEOUS
     Route: 058
     Dates: start: 20030101
  2. MULTI-VITAMINS [Concomitant]
  3. PREDNISONE [Concomitant]
  4. ATORVASTATIN [Concomitant]
  5. LEFLUNOMIDE [Concomitant]
  6. ESOMEPRAZOLE [Concomitant]
  7. OXYBUTYNIN [Concomitant]
  8. LEXAPRO [Concomitant]
  9. ASPIRIN [Concomitant]

REACTIONS (1)
  - UPPER RESPIRATORY TRACT INFECTION [None]
